FAERS Safety Report 6697275-5 (Version None)
Quarter: 2010Q2

REPORT INFORMATION
  Report Type: 
  Country: None (occurrence: None)
  Receive Date: 20100426
  Receipt Date: 20100403
  Transmission Date: 20101027
  Serious: No
  Sender: FDA-Public Use
  Company Number: KR-ELI_LILLY_AND_COMPANY-KR201004000647

PATIENT
  Sex: Male

DRUGS (2)
  1. HUMALOG [Suspect]
     Indication: DIABETES MELLITUS
     Dosage: 10 U, 3/D
     Route: 058
     Dates: start: 19950101
  2. HUMALOG [Suspect]
     Dosage: 21 U, 2/D
     Route: 058
     Dates: start: 19950101

REACTIONS (5)
  - BLOOD GLUCOSE ABNORMAL [None]
  - BLOOD GLUCOSE INCREASED [None]
  - INJECTION SITE ABSCESS [None]
  - INJECTION SITE SWELLING [None]
  - POOR QUALITY DRUG ADMINISTERED [None]
